FAERS Safety Report 6125387-3 (Version None)
Quarter: 2009Q1

REPORT INFORMATION
  Report Type: 
  Country: None (occurrence: None)
  Receive Date: 20090317
  Receipt Date: 20090302
  Transmission Date: 20090719
  Serious: Yes (Death, Other)
  Sender: FDA-Public Use
  Company Number: 2009000475

PATIENT
  Age: 57 Year
  Sex: Female

DRUGS (1)
  1. TARCEVA [Suspect]
     Indication: NON-SMALL CELL LUNG CANCER
     Dosage: 150 MG, QD, ORAL
     Route: 048
     Dates: start: 20090122, end: 20090128

REACTIONS (3)
  - INTERSTITIAL LUNG DISEASE [None]
  - PULMONARY EMBOLISM [None]
  - RASH [None]
